FAERS Safety Report 13433473 (Version 1)
Quarter: 2017Q2

REPORT INFORMATION
  Report Type: Report from Study
  Country: US (occurrence: US)
  Receive Date: 20170412
  Receipt Date: 20170412
  Transmission Date: 20170830
  Serious: No
  Sender: FDA-Public Use
  Company Number: US-AMGEN-USASL2017052384

PATIENT
  Sex: Female

DRUGS (1)
  1. ENBREL [Suspect]
     Active Substance: ETANERCEPT
     Indication: RHEUMATOID ARTHRITIS
     Dosage: 50 MG, QWK
     Route: 065
     Dates: end: 201703

REACTIONS (7)
  - Fibromyalgia [Unknown]
  - Pyrexia [Unknown]
  - Arthropathy [Unknown]
  - Ill-defined disorder [Unknown]
  - Injury [Unknown]
  - Cognitive disorder [Unknown]
  - Drug effect decreased [Unknown]
